FAERS Safety Report 8816951 (Version 1)
Quarter: 2012Q4

REPORT INFORMATION
  Report Type: Spontaneous
  Country: US (occurrence: None)
  Receive Date: 20121003
  Receipt Date: 20121003
  Transmission Date: 20130627
  Serious: Yes (Other)
  Sender: FDA-Public Use
  Company Number: None

PATIENT
  Age: 42 Year
  Sex: Female
  Weight: 136.08 kg

DRUGS (1)
  1. TOPAMAX [Suspect]

REACTIONS (4)
  - Disturbance in attention [None]
  - Amnesia [None]
  - Amnesia [None]
  - Unevaluable event [None]
